FAERS Safety Report 23868333 (Version 1)
Quarter: 2024Q2

REPORT INFORMATION
  Report Type: Spontaneous
  Country: US (occurrence: US)
  Receive Date: 20240517
  Receipt Date: 20240517
  Transmission Date: 20240716
  Serious: No
  Sender: FDA-Public Use
  Company Number: US-Stemline Therapeutics, Inc.-2024ST001642

PATIENT
  Age: 88 Year
  Sex: Female

DRUGS (1)
  1. ORSERDU [Suspect]
     Active Substance: ELACESTRANT
     Indication: Product used for unknown indication
     Route: 048
     Dates: start: 202402, end: 202403

REACTIONS (5)
  - Feeling abnormal [Unknown]
  - Adverse drug reaction [Unknown]
  - Vomiting [Unknown]
  - Diarrhoea [Unknown]
  - Asthenia [Unknown]
